FAERS Safety Report 4972640-2 (Version None)
Quarter: 2006Q1

REPORT INFORMATION
  Report Type: 
  Country: None (occurrence: None)
  Receive Date: 20060216
  Receipt Date: 20051219
  Transmission Date: 20060701
  Serious: Yes (Hospitalization)
  Sender: FDA-Public Use
  Company Number: 200512IM000850

PATIENT
  Age: 67 Year
  Sex: Male
  Weight: 60.782 kg

DRUGS (5)
  1. INTERFERON GAMMA-1B [Suspect]
     Indication: IDIOPATHIC PULMONARY FIBROSIS
     Dosage: 200 UG, TIW, SUBCUTANEOUS
     Route: 058
  2. ALBUTEROL SULFATE AUTOHALER [Concomitant]
  3. ATROVENT [Concomitant]
  4. PULMICORT [Concomitant]
  5. OXYGEN [Concomitant]

REACTIONS (1)
  - DYSPNOEA [None]
